FAERS Safety Report 6215146-5 (Version None)
Quarter: 2009Q2

REPORT INFORMATION
  Report Type: 
  Country: None (occurrence: None)
  Receive Date: 20090604
  Receipt Date: 20090403
  Transmission Date: 20091009
  Serious: No
  Sender: FDA-Public Use
  Company Number: US-ASTRAZENECA-2009UW08480

PATIENT
  Age: 69 Year
  Sex: Female
  Weight: 62.6 kg

DRUGS (3)
  1. OMEPRAZOLE [Suspect]
     Route: 048
     Dates: start: 20090318
  2. PAXIL [Concomitant]
  3. LEVOXYL [Concomitant]

REACTIONS (2)
  - FLATULENCE [None]
  - LACTOSE INTOLERANCE [None]
